FAERS Safety Report 8130314-3 (Version None)
Quarter: 2012Q1

REPORT INFORMATION
  Report Type: 
  Country: None (occurrence: None)
  Receive Date: 20120210
  Receipt Date: 20120206
  Transmission Date: 20120608
  Serious: Yes (Other)
  Sender: FDA-Public Use
  Company Number: PHHY2012BE008949

PATIENT
  Sex: Female

DRUGS (3)
  1. ZOLEDRONOC ACID [Suspect]
     Indication: OSTEOPOROSIS
     Dosage: 5 MG, UNK
     Route: 042
  2. ZOLEDRONOC ACID [Suspect]
     Dosage: 5 MG, UNK
     Route: 042
     Dates: start: 20111226
  3. SIMVASTATIN [Concomitant]
     Dosage: UNK UKN, UNK

REACTIONS (4)
  - ERYSIPELAS [None]
  - INFUSION SITE INFECTION [None]
  - INFUSION SITE SWELLING [None]
  - POOR VENOUS ACCESS [None]
